FAERS Safety Report 9775389 (Version 1)
Quarter: 2013Q4

REPORT INFORMATION
  Report Type: Spontaneous
  Country: FR (occurrence: FR)
  Receive Date: 20131220
  Receipt Date: 20131220
  Transmission Date: 20140711
  Serious: Yes (Other)
  Sender: FDA-Public Use
  Company Number: FR-JNJFOC-20131210187

PATIENT
  Age: 18 Year
  Sex: Female

DRUGS (2)
  1. REMICADE [Suspect]
     Indication: CROHN^S DISEASE
     Route: 042
     Dates: start: 20131119, end: 20131119
  2. REMICADE [Suspect]
     Indication: CROHN^S DISEASE
     Route: 042

REACTIONS (9)
  - Erythema [Recovered/Resolved]
  - Laryngeal oedema [Recovered/Resolved]
  - Eyelid oedema [Recovered/Resolved]
  - Vomiting [Recovered/Resolved]
  - Nausea [Recovered/Resolved]
  - Hypotension [Recovered/Resolved]
  - Infusion related reaction [Recovered/Resolved]
  - Burning sensation [Recovered/Resolved]
  - Asthenia [Recovered/Resolved]
